FAERS Safety Report 6297986-X (Version None)
Quarter: 2009Q3

REPORT INFORMATION
  Report Type: 
  Country: None (occurrence: None)
  Receive Date: 20090805
  Receipt Date: 20090729
  Transmission Date: 20100115
  Serious: Yes (Other)
  Sender: FDA-Public Use
  Company Number: B0582525A

PATIENT
  Sex: Female

DRUGS (6)
  1. LANOXIN [Suspect]
     Indication: DRUG USE FOR UNKNOWN INDICATION
     Dosage: .125MG PER DAY
     Route: 048
     Dates: start: 20090101, end: 20090511
  2. TICLOPIDINE HCL [Concomitant]
  3. ASPIRIN [Concomitant]
  4. FRUSEMIDE [Concomitant]
  5. SPIRONOLACTONE [Concomitant]
  6. RAMIPRIL [Concomitant]

REACTIONS (2)
  - DECREASED APPETITE [None]
  - OVERDOSE [None]
